FAERS Safety Report 5997085-8 (Version None)
Quarter: 2008Q4

REPORT INFORMATION
  Report Type: 
  Country: None (occurrence: None)
  Receive Date: 20081212
  Receipt Date: 20081103
  Transmission Date: 20090506
  Serious: No
  Sender: FDA-Public Use
  Company Number: US-ABBOTT-08P-163-0485338-00

PATIENT
  Sex: Female
  Weight: 90.8 kg

DRUGS (2)
  1. HUMIRA [Suspect]
     Indication: PSORIASIS
     Route: 058
     Dates: start: 20080301
  2. NAPROXEN SODIUM [Concomitant]
     Indication: PAIN

REACTIONS (2)
  - INCORRECT DOSE ADMINISTERED [None]
  - PSORIASIS [None]
